FAERS Safety Report 15743040 (Version 3)
Quarter: 2019Q4

REPORT INFORMATION
  Report Type: Report from Study
  Country: US (occurrence: US)
  Receive Date: 20181220
  Receipt Date: 20191217
  Transmission Date: 20200122
  Serious: Yes (Hospitalization, Other)
  Sender: FDA-Public Use
  Company Number: US-ROCHE-1628611

PATIENT
  Sex: Female

DRUGS (13)
  1. CELLCEPT [Suspect]
     Active Substance: MYCOPHENOLATE MOFETIL\MYCOPHENOLATE MOFETIL HYDROCHLORIDE
     Indication: LUNG TRANSPLANT
     Route: 048
  2. CELLCEPT [Suspect]
     Active Substance: MYCOPHENOLATE MOFETIL\MYCOPHENOLATE MOFETIL HYDROCHLORIDE
     Dosage: 1 TABLET DAILY HOSPITAL
     Route: 065
  3. CLONAZEPAM. [Suspect]
     Active Substance: CLONAZEPAM
     Indication: PRODUCT USED FOR UNKNOWN INDICATION
     Dosage: 0.5 MG BID SOMETIMES TID
     Route: 048
  4. PRILOSEC [Concomitant]
     Active Substance: OMEPRAZOLE MAGNESIUM
     Route: 048
  5. CELLCEPT [Suspect]
     Active Substance: MYCOPHENOLATE MOFETIL\MYCOPHENOLATE MOFETIL HYDROCHLORIDE
     Indication: LUNG TRANSPLANT
     Dosage: 3 PO
     Route: 048
  6. VALCYTE [Suspect]
     Active Substance: VALGANCICLOVIR HYDROCHLORIDE
     Indication: PROPHYLAXIS
  7. MYFORTIC [Concomitant]
     Active Substance: MYCOPHENOLATE SODIUM
     Route: 048
  8. CELLCEPT [Suspect]
     Active Substance: MYCOPHENOLATE MOFETIL\MYCOPHENOLATE MOFETIL HYDROCHLORIDE
     Indication: PROPHYLAXIS
     Route: 048
  9. NEURONTIN [Concomitant]
     Active Substance: GABAPENTIN
     Route: 048
  10. ZITHROMAX [Concomitant]
     Active Substance: AZITHROMYCIN DIHYDRATE
     Route: 048
  11. NORVASC [Concomitant]
     Active Substance: AMLODIPINE BESYLATE
     Route: 048
  12. PROGRAF [Concomitant]
     Active Substance: TACROLIMUS
     Route: 048
  13. VALCYTE [Suspect]
     Active Substance: VALGANCICLOVIR HYDROCHLORIDE
     Indication: LUNG TRANSPLANT
     Route: 048

REACTIONS (22)
  - Frustration tolerance decreased [Unknown]
  - Arthralgia [Unknown]
  - Anxiety [Unknown]
  - Sinus congestion [Unknown]
  - Off label use [Unknown]
  - Diarrhoea [Unknown]
  - Productive cough [Unknown]
  - Insomnia [Unknown]
  - Pancreatitis [Unknown]
  - Transplant rejection [Unknown]
  - Psychomotor hyperactivity [Unknown]
  - Memory impairment [Unknown]
  - Weight bearing difficulty [Unknown]
  - Palpitations [Unknown]
  - Pressure of speech [Unknown]
  - Tachyarrhythmia [Unknown]
  - Feeling abnormal [Unknown]
  - Impulse-control disorder [Unknown]
  - White blood cell count increased [Unknown]
  - Headache [Unknown]
  - Intentional product use issue [Unknown]
  - Pancreatic failure [Unknown]
